FAERS Safety Report 7035811-X (Version None)
Quarter: 2010Q4

REPORT INFORMATION
  Report Type: 
  Country: None (occurrence: None)
  Receive Date: 20101008
  Receipt Date: 20100929
  Transmission Date: 20110411
  Serious: Yes (Life-Threatening, Hospitalization)
  Sender: FDA-Public Use
  Company Number: JP-AMGEN-QUU438359

PATIENT
  Sex: Female
  Weight: 52 kg

DRUGS (6)
  1. ETANERCEPT [Suspect]
     Indication: RHEUMATOID ARTHRITIS
     Route: 058
     Dates: start: 20070801, end: 20070911
  2. ETANERCEPT [Suspect]
     Route: 058
     Dates: start: 20070912, end: 20080630
  3. TOCILIZUMAB [Suspect]
     Indication: RHEUMATOID ARTHRITIS
     Dosage: UNSPECIFIED, ONCE
     Route: 042
     Dates: start: 20080701, end: 20080701
  4. TOCILIZUMAB [Suspect]
     Dosage: UNSPECIFIED
     Dates: start: 20090601
  5. METHOTREXATE [Concomitant]
     Indication: RHEUMATOID ARTHRITIS
     Dosage: 2 MG/FREQUENCY UNSPECIFIED
     Route: 048
  6. PREDNISOLONE [Concomitant]
     Indication: RHEUMATOID ARTHRITIS
     Dosage: UNSPECIFIED
     Route: 048

REACTIONS (3)
  - BREAST CANCER FEMALE [None]
  - DRUG INEFFECTIVE [None]
  - HIP ARTHROPLASTY [None]
